FAERS Safety Report 22388062 (Version 1)
Quarter: 2023Q2

REPORT INFORMATION
  Report Type: Spontaneous
  Country: US (occurrence: None)
  Receive Date: 20230530
  Receipt Date: 20230530
  Transmission Date: 20230722
  Serious: Yes (Hospitalization)
  Sender: FDA-Public Use
  Company Number: None

PATIENT
  Age: 61 Year

DRUGS (12)
  1. CAPECITABINE [Suspect]
     Active Substance: CAPECITABINE
     Indication: Gastric cancer
     Dosage: 4T BID PO AFTER BRFST/DINNER?
     Route: 048
     Dates: start: 20230401
  2. ATORVASTATIN [Concomitant]
     Active Substance: ATORVASTATIN
  3. VITAMIN D3 [Concomitant]
     Active Substance: CHOLECALCIFEROL
  4. FERROUS SULFATE [Concomitant]
     Active Substance: FERROUS SULFATE
  5. WIXELA INHUB [Concomitant]
     Active Substance: FLUTICASONE PROPIONATE\SALMETEROL XINAFOATE
  6. LATANOPROST [Concomitant]
     Active Substance: LATANOPROST
  7. LIDOCAINE [Concomitant]
     Active Substance: LIDOCAINE
  8. FAMOTIDINE [Concomitant]
     Active Substance: FAMOTIDINE
  9. ONDANSETRON [Concomitant]
     Active Substance: ONDANSETRON
  10. PROCHLORPERAZINE [Concomitant]
     Active Substance: PROCHLORPERAZINE
  11. TRAMADOL [Concomitant]
     Active Substance: TRAMADOL
  12. SUCRALFATE [Concomitant]
     Active Substance: SUCRALFATE

REACTIONS (7)
  - Dehydration [None]
  - Nausea [None]
  - Vomiting [None]
  - Pallor [None]
  - Decreased appetite [None]
  - Weight decreased [None]
  - Hypophagia [None]

NARRATIVE: CASE EVENT DATE: 20230509
